FAERS Safety Report 6716948-9 (Version None)
Quarter: 2010Q2

REPORT INFORMATION
  Report Type: 
  Country: None (occurrence: None)
  Receive Date: 20100510
  Receipt Date: 20100429
  Transmission Date: 20101027
  Serious: No
  Sender: FDA-Public Use
  Company Number: US-JNJFOC-20100500435

PATIENT
  Sex: Male
  Weight: 87.54 kg

DRUGS (1)
  1. DURAGESIC-100 [Suspect]
     Indication: SPINAL CORD INJURY
     Route: 062

REACTIONS (2)
  - DRUG DOSE OMISSION [None]
  - PAIN [None]
